FAERS Safety Report 23924336 (Version 1)
Quarter: 2024Q2

REPORT INFORMATION
  Report Type: Spontaneous
  Country: PT (occurrence: PT)
  Receive Date: 20240531
  Receipt Date: 20240531
  Transmission Date: 20240716
  Serious: Yes (Life-Threatening, Hospitalization, Other)
  Sender: FDA-Public Use
  Company Number: PT-MLMSERVICE-20240513-PI058475-00077-1

PATIENT
  Age: 72 Year
  Sex: Male

DRUGS (2)
  1. CAPECITABINE [Suspect]
     Active Substance: CAPECITABINE
     Indication: Colon cancer stage IV
  2. CAPECITABINE [Suspect]
     Active Substance: CAPECITABINE
     Indication: Adjuvant therapy

REACTIONS (8)
  - Pneumonia serratia [Recovering/Resolving]
  - Neutropenia [Recovering/Resolving]
  - Pneumonia acinetobacter [Recovering/Resolving]
  - Candida infection [Recovering/Resolving]
  - Rash erythematous [Recovering/Resolving]
  - Diarrhoea [Recovering/Resolving]
  - Mucosal inflammation [Recovering/Resolving]
  - Exfoliative rash [Recovering/Resolving]
